FAERS Safety Report 4595710-X (Version None)
Quarter: 2005Q1

REPORT INFORMATION
  Report Type: 
  Country: None (occurrence: None)
  Receive Date: 20050224
  Receipt Date: 20041117
  Transmission Date: 20050727
  Serious: Yes (Hospitalization)
  Sender: FDA-Public Use
  Company Number: 2004230259FI

PATIENT
  Age: 92 Year
  Sex: Female

DRUGS (9)
  1. BEXTRA [Suspect]
     Indication: PAIN
     Dosage: 10 MG (10 MG 1 IN 1 D) ORAL
     Route: 048
     Dates: start: 20040730, end: 20040731
  2. ISOSORBIDE DINITRATE [Concomitant]
  3. FUROSEMIDE [Concomitant]
  4. CARVEDILOL [Concomitant]
  5. RAMIPRIL [Concomitant]
  6. PHENYTOIN [Concomitant]
  7. RISEDRONATE SODIUM( RISEDRONATE SODIUM) [Concomitant]
  8. VITAMIDYNE A AND D (ERGOCALCIFERON, RETINOL) [Concomitant]
  9. NULYTELY (MACROGOL, POTASSIUM CHLORIDE, SODIUM BICARBONATE, SODIUM CHL [Concomitant]

REACTIONS (3)
  - ANGIONEUROTIC OEDEMA [None]
  - CARDIAC FAILURE [None]
  - URTICARIA [None]
